FAERS Safety Report 6765078-9 (Version None)
Quarter: 2010Q2

REPORT INFORMATION
  Report Type: 
  Country: None (occurrence: None)
  Receive Date: 20100609
  Receipt Date: 20100609
  Transmission Date: 20101027
  Serious: Yes (Other)
  Sender: FDA-Public Use
  Company Number: None

PATIENT
  Age: 61 Year
  Sex: Female
  Weight: 68.0396 kg

DRUGS (2)
  1. TRIAMTERENE AND HYDROCHLOROTHIAZIDE [Suspect]
     Indication: HYPERTENSION
     Dosage: ONE CAPSULE ONCE A DAY PO
     Route: 048
     Dates: start: 20100428, end: 20100608
  2. ^HYDROCHLORO...?^ [Concomitant]

REACTIONS (2)
  - MUSCLE SPASMS [None]
  - ORTHOSTATIC HYPOTENSION [None]
